FAERS Safety Report 18621251 (Version 2)
Quarter: 2020Q4

REPORT INFORMATION
  Report Type: Spontaneous
  Country: AR (occurrence: AR)
  Receive Date: 20201216
  Receipt Date: 20201223
  Transmission Date: 20210114
  Serious: Yes (Death)
  Sender: FDA-Public Use
  Company Number: AR-ROCHE-2731273

PATIENT
  Sex: Female

DRUGS (2)
  1. OCREVUS [Suspect]
     Active Substance: OCRELIZUMAB
     Indication: PRIMARY PROGRESSIVE MULTIPLE SCLEROSIS
     Dosage: DOSE WAS REPORTED AS 1 VIAL AND FREQUENCY WAS NOT REPORTED SPECIFICALLY.
     Route: 065
     Dates: start: 20200701
  2. OCREVUS [Suspect]
     Active Substance: OCRELIZUMAB
     Route: 042
     Dates: start: 20200715

REACTIONS (2)
  - Cardiac arrest [Fatal]
  - Syncope [Fatal]
